FAERS Safety Report 9973489 (Version 1)
Quarter: 2014Q1

REPORT INFORMATION
  Report Type: Spontaneous
  Country: US (occurrence: US)
  Receive Date: 20140306
  Receipt Date: 20140306
  Transmission Date: 20141002
  Serious: Yes (Other)
  Sender: FDA-Public Use
  Company Number: US-PFIZER INC-2014061406

PATIENT
  Age: 55 Year
  Sex: Female

DRUGS (8)
  1. MORPHINE SULFATE [Suspect]
     Indication: PAIN
     Dosage: UNK
  2. PERCOCET [Suspect]
     Indication: PAIN
     Dosage: UNK
  3. VICODIN [Suspect]
     Indication: PAIN
     Dosage: UNK
  4. DEMEROL [Suspect]
     Indication: PAIN
     Dosage: UNK
  5. VALIUM [Concomitant]
  6. KLONOPIN [Concomitant]
  7. SOMA [Concomitant]
  8. PREMPRO [Concomitant]

REACTIONS (3)
  - Meningioma [Unknown]
  - Activities of daily living impaired [Unknown]
  - Mental disorder [Unknown]
